FAERS Safety Report 4746036-2 (Version None)
Quarter: 2005Q3

REPORT INFORMATION
  Report Type: 
  Country: None (occurrence: None)
  Receive Date: 20050816
  Receipt Date: 20050520
  Transmission Date: 20060218
  Serious: Yes (Other)
  Sender: FDA-Public Use
  Company Number: PHEH2005US05837

PATIENT
  Age: 49 Year
  Sex: Female

DRUGS (1)
  1. FEMARA [Suspect]
     Indication: BREAST CANCER
     Dates: start: 20050401, end: 20050512

REACTIONS (2)
  - PHOTOSENSITIVITY REACTION [None]
  - URTICARIA [None]
